FAERS Safety Report 15753109 (Version 3)
Quarter: 2020Q4

REPORT INFORMATION
  Report Type: Report from Study
  Country: JP (occurrence: JP)
  Receive Date: 20181221
  Receipt Date: 20201221
  Transmission Date: 20210113
  Serious: Yes (Death, Other)
  Sender: FDA-Public Use
  Company Number: JP-AMGEN-JPNCT2018182144

PATIENT
  Age: 79 Year
  Sex: Male

DRUGS (9)
  1. ALFAROL [Concomitant]
     Active Substance: ALFACALCIDOL
     Indication: MYELODYSPLASTIC SYNDROME
     Dosage: 1 UG
     Route: 048
     Dates: start: 20171226
  2. TRAZENTA [Concomitant]
     Active Substance: LINAGLIPTIN
     Dosage: 5 MG
     Route: 048
     Dates: start: 20180719
  3. DARBEPOETIN ALFA [Suspect]
     Active Substance: DARBEPOETIN ALFA
     Indication: MYELODYSPLASTIC SYNDROME
     Dosage: 240 MUG, Q4WK
     Route: 058
     Dates: start: 20170829, end: 20171024
  4. PRIMOBOLAN [Suspect]
     Active Substance: METHENOLONE
     Indication: MYELODYSPLASTIC SYNDROME
     Dosage: 10 MG, UNK
     Route: 048
     Dates: start: 20171128
  5. GLAKAY [Concomitant]
     Active Substance: MENATETRENONE
     Indication: MYELODYSPLASTIC SYNDROME
  6. DARBEPOETIN ALFA [Suspect]
     Active Substance: DARBEPOETIN ALFA
     Dosage: 240 MUG, QWK
     Route: 058
     Dates: start: 20171031, end: 20171107
  7. DARBEPOETIN ALFA [Suspect]
     Active Substance: DARBEPOETIN ALFA
     Dosage: 240 MUG, QD
     Route: 058
     Dates: start: 20171121, end: 20171121
  8. GLAKAY [Concomitant]
     Active Substance: MENATETRENONE
     Indication: MYELODYSPLASTIC SYNDROME
     Dosage: 45 MG
     Route: 048
     Dates: start: 20171226
  9. ALFAROL [Concomitant]
     Active Substance: ALFACALCIDOL
     Indication: MYELODYSPLASTIC SYNDROME

REACTIONS (2)
  - Death [Fatal]
  - Type 2 diabetes mellitus [Recovering/Resolving]

NARRATIVE: CASE EVENT DATE: 20180213
